FAERS Safety Report 5592997-1 (Version None)
Quarter: 2008Q1

REPORT INFORMATION
  Report Type: 
  Country: None (occurrence: None)
  Receive Date: 20080114
  Receipt Date: 20080114
  Transmission Date: 20080703
  Serious: Yes (Hospitalization)
  Sender: FDA-Public Use
  Company Number: None

PATIENT
  Sex: Female
  Weight: 77.4 kg

DRUGS (2)
  1. CELLCEPT [Suspect]
     Indication: PROPHYLAXIS AGAINST TRANSPLANT REJECTION
     Dosage: 750MG TWICE DAILY PO
     Route: 048
     Dates: start: 20060117
  2. PROGRAF [Suspect]
     Dosage: 5MG TWICE DAILY PO
     Route: 048
     Dates: start: 20060119

REACTIONS (1)
  - TRANSPLANT REJECTION [None]
